FAERS Safety Report 8105972-X (Version None)
Quarter: 2012Q1

REPORT INFORMATION
  Report Type: 
  Country: None (occurrence: None)
  Receive Date: 20120202
  Receipt Date: 20120126
  Transmission Date: 20120608
  Serious: No
  Sender: FDA-Public Use
  Company Number: US-BIOGENIDEC-2012BI003308

PATIENT
  Age: 56 Year
  Sex: Female

DRUGS (1)
  1. TYSABRI [Suspect]
     Indication: MULTIPLE SCLEROSIS
     Route: 042
     Dates: start: 20111107

REACTIONS (8)
  - COGNITIVE DISORDER [None]
  - MUSCLE SPASTICITY [None]
  - FATIGUE [None]
  - INSOMNIA [None]
  - HEMIPARESIS [None]
  - DEPRESSED MOOD [None]
  - STRESS [None]
  - HEADACHE [None]
